FAERS Safety Report 6381457-6 (Version None)
Quarter: 2009Q3

REPORT INFORMATION
  Report Type: 
  Country: None (occurrence: None)
  Receive Date: 20090923
  Receipt Date: 20090507
  Transmission Date: 20100115
  Serious: Yes (Other)
  Sender: FDA-Public Use
  Company Number: CL-60-2009

PATIENT
  Age: 58 Year
  Sex: Male

DRUGS (2)
  1. CIPROFLOXACIN HYDROCHLORIDE [Suspect]
     Indication: OTITIS MEDIA CHRONIC
  2. CARBAMAZEPINE [Concomitant]

REACTIONS (1)
  - MUSCULOSKELETAL PAIN [None]
